FAERS Safety Report 9123562 (Version 1)
Quarter: 2013Q1

REPORT INFORMATION
  Report Type: Spontaneous
  Country: MX (occurrence: MX)
  Receive Date: 20130227
  Receipt Date: 20130227
  Transmission Date: 20140127
  Serious: Yes (Other)
  Sender: FDA-Public Use
  Company Number: PHHY2013MX018310

PATIENT
  Sex: Male

DRUGS (1)
  1. STALEVO [Suspect]
     Indication: PARKINSON^S DISEASE
     Dosage: 4 DF, (200/50/12.5 MG) DAILY
     Route: 048
     Dates: start: 20101017

REACTIONS (2)
  - Neoplasm malignant [Unknown]
  - Speech disorder [Unknown]
